FAERS Safety Report 12631126 (Version 2)
Quarter: 2016Q3

REPORT INFORMATION
  Report Type: Spontaneous
  Country: US (occurrence: US)
  Receive Date: 20160808
  Receipt Date: 20160808
  Transmission Date: 20161109
  Serious: No
  Sender: FDA-Public Use
  Company Number: US-BEH-2015052376

PATIENT
  Sex: Female
  Weight: 47 kg

DRUGS (24)
  1. HIZENTRA [Suspect]
     Active Substance: HUMAN IMMUNOGLOBULIN G
     Dosage: 2 G 10 ML VIAL
  2. EPIPEN [Concomitant]
     Active Substance: EPINEPHRINE
     Indication: ANAPHYLACTIC REACTION
  3. LISINOPRIL. [Concomitant]
     Active Substance: LISINOPRIL
  4. LEVONEST [Concomitant]
     Active Substance: ETHINYL ESTRADIOL\LEVONORGESTREL
  5. NASACORT [Concomitant]
     Active Substance: TRIAMCINOLONE ACETONIDE
  6. HIZENTRA [Suspect]
     Active Substance: HUMAN IMMUNOGLOBULIN G
     Dosage: 1 G 5 ML VIAL
  7. HYDROXYZINE [Concomitant]
     Active Substance: HYDROXYZINE\HYDROXYZINE HYDROCHLORIDE
  8. XOLAIR [Concomitant]
     Active Substance: OMALIZUMAB
  9. METOPROLOL. [Concomitant]
     Active Substance: METOPROLOL
  10. DULERA [Concomitant]
     Active Substance: FORMOTEROL FUMARATE DIHYDRATE\MOMETASONE FUROATE
  11. HIZENTRA [Suspect]
     Active Substance: HUMAN IMMUNOGLOBULIN G
     Indication: IMMUNODEFICIENCY COMMON VARIABLE
     Dosage: AS DIRECTED
     Route: 058
  12. DIPHENHYDRAMINE. [Concomitant]
     Active Substance: DIPHENHYDRAMINE
     Indication: ANAPHYLACTIC REACTION
  13. NITROSTAT [Concomitant]
     Active Substance: NITROGLYCERIN
  14. MELATONIN [Concomitant]
     Active Substance: MELATONIN
  15. ALBUTEROL. [Concomitant]
     Active Substance: ALBUTEROL
  16. CO-Q [Concomitant]
  17. CALCIUM [Concomitant]
     Active Substance: CALCIUM
  18. ACETAMINOPHEN. [Concomitant]
     Active Substance: ACETAMINOPHEN
  19. LIDOCAINE. [Concomitant]
     Active Substance: LIDOCAINE
  20. ACCOLATE [Concomitant]
     Active Substance: ZAFIRLUKAST
  21. HIZENTRA [Suspect]
     Active Substance: HUMAN IMMUNOGLOBULIN G
     Dosage: 4 G 20 ML VIAL
  22. ISOSORBIDE. [Concomitant]
     Active Substance: ISOSORBIDE
  23. OMEPRAZOLE. [Concomitant]
     Active Substance: OMEPRAZOLE
  24. ATORVASTATIN [Concomitant]
     Active Substance: ATORVASTATIN

REACTIONS (1)
  - Vomiting [Unknown]
